FAERS Safety Report 7729084-X (Version None)
Quarter: 2011Q3

REPORT INFORMATION
  Report Type: 
  Country: None (occurrence: None)
  Receive Date: 20110831
  Receipt Date: 20110831
  Transmission Date: 20111222
  Serious: Yes (Life-Threatening, Disabling)
  Sender: FDA-Public Use
  Company Number: None

PATIENT
  Age: 57 Year
  Sex: Female
  Weight: 165 kg

DRUGS (2)
  1. PROAIR HFA [Suspect]
  2. ATIVAN [Suspect]
     Dosage: 1 MG. 1 X DAILY P.O.
     Route: 048
     Dates: start: 20000101, end: 20090101

REACTIONS (2)
  - H1N1 INFLUENZA [None]
  - DYSPHAGIA [None]
